FAERS Safety Report 5974332-X (Version None)
Quarter: 2008Q4

REPORT INFORMATION
  Report Type: 
  Country: None (occurrence: None)
  Receive Date: 20081201
  Receipt Date: 20081022
  Transmission Date: 20090506
  Serious: Yes (Death)
  Sender: FDA-Public Use
  Company Number: US-PFIZER INC-2008089835

PATIENT
  Sex: Male
  Weight: 67.6 kg

DRUGS (12)
  1. NEURONTIN [Suspect]
     Indication: ABDOMINAL PAIN
     Route: 048
     Dates: start: 20070101, end: 20081022
  2. LISINOPRIL [Concomitant]
  3. METFORMIN HCL [Concomitant]
  4. ACTOS [Concomitant]
  5. SEROQUEL [Concomitant]
  6. AMBIEN [Concomitant]
  7. CLOMIPRAMINE HCL [Concomitant]
  8. HYTRIN [Concomitant]
  9. MIRAPEX [Concomitant]
  10. ALL OTHER THERAPEUTIC PRODUCTS [Concomitant]
  11. PROMETHAZINE [Concomitant]
  12. NEXIUM [Concomitant]

REACTIONS (1)
  - DEATH [None]
